FAERS Safety Report 8198633-2 (Version None)
Quarter: 2012Q1

REPORT INFORMATION
  Report Type: 
  Country: None (occurrence: None)
  Receive Date: 20120309
  Receipt Date: 20120301
  Transmission Date: 20120608
  Serious: Yes (Hospitalization, Other)
  Sender: FDA-Public Use
  Company Number: PHHY2012CH018288

PATIENT
  Age: 77 Year
  Sex: Female

DRUGS (4)
  1. CALCIUM CARBONATE [Concomitant]
     Dosage: UNK UKN, UNK
  2. ZOMETA [Suspect]
     Indication: BREAST CANCER IN SITU
     Dosage: 4 MG DOSE EVERY 2 MONTHS
     Route: 041
     Dates: start: 20040101, end: 20060101
  3. AREDIA [Suspect]
     Indication: BREAST CANCER IN SITU
     Dosage: UNK UKN, UNK
     Route: 041
     Dates: start: 19990101, end: 20030101
  4. DIDRONEL [Concomitant]
     Dosage: UNK UKN, UNK
     Dates: start: 19950101, end: 19990101

REACTIONS (2)
  - FALL [None]
  - PATHOLOGICAL FRACTURE [None]
